FAERS Safety Report 5309955-4 (Version None)
Quarter: 2007Q2

REPORT INFORMATION
  Report Type: 
  Country: None (occurrence: None)
  Receive Date: 20070427
  Receipt Date: 20070424
  Transmission Date: 20071010
  Serious: Yes (Death)
  Sender: FDA-Public Use
  Company Number: 2007UW08047

PATIENT
  Age: 51 Year
  Sex: Female

DRUGS (1)
  1. FASLODEX [Suspect]
     Indication: BREAST CANCER RECURRENT
     Route: 048
     Dates: start: 20061201, end: 20070201

REACTIONS (2)
  - DEATH [None]
  - LIVER FUNCTION TEST ABNORMAL [None]
